FAERS Safety Report 12233808 (Version 1)
Quarter: 2016Q2

REPORT INFORMATION
  Report Type: Spontaneous
  Country: US (occurrence: None)
  Receive Date: 20160401
  Receipt Date: 20160401
  Transmission Date: 20160815
  Serious: Yes (Hospitalization)
  Sender: FDA-Public Use
  Company Number: None

PATIENT
  Age: 63 Year
  Sex: Female
  Weight: 81.65 kg

DRUGS (12)
  1. INVOKANA [Suspect]
     Active Substance: CANAGLIFLOZIN
     Indication: TYPE 2 DIABETES MELLITUS
     Dosage: 1 TABLET(S) IN THE  MORNING TAKEN BY MOUTH
     Route: 048
  2. LANTUS [Concomitant]
     Active Substance: INSULIN GLARGINE
  3. METFORMIN [Concomitant]
     Active Substance: METFORMIN HYDROCHLORIDE
  4. CALCIUM [Concomitant]
     Active Substance: CALCIUM
  5. LANSOPRAZOLE. [Concomitant]
     Active Substance: LANSOPRAZOLE
  6. VITAMIN D [Concomitant]
     Active Substance: CHOLECALCIFEROL
  7. RANITIDINE. [Concomitant]
     Active Substance: RANITIDINE
  8. ASPIRIN. [Concomitant]
     Active Substance: ASPIRIN
  9. VITAMIN B12 [Concomitant]
     Active Substance: CYANOCOBALAMIN
  10. LEXAPRO [Concomitant]
     Active Substance: ESCITALOPRAM OXALATE
  11. FOLIC ACID. [Concomitant]
     Active Substance: FOLIC ACID
  12. IRON [Concomitant]
     Active Substance: IRON

REACTIONS (9)
  - Lethargy [None]
  - Fatigue [None]
  - Abdominal pain upper [None]
  - Diabetic ketoacidosis [None]
  - Muscle spasms [None]
  - Nausea [None]
  - Oedema [None]
  - Weight increased [None]
  - Confusional state [None]

NARRATIVE: CASE EVENT DATE: 20160313
